FAERS Safety Report 9381244 (Version 2)
Quarter: 2013Q4

REPORT INFORMATION
  Report Type: Spontaneous
  Country: US (occurrence: US)
  Receive Date: 20130703
  Receipt Date: 20131107
  Transmission Date: 20140711
  Serious: No
  Sender: FDA-Public Use
  Company Number: US-PFIZER INC-2013194412

PATIENT
  Age: 28 Year
  Sex: Female
  Weight: 130 kg

DRUGS (3)
  1. VISTARIL [Suspect]
     Indication: BLADDER PAIN
     Dosage: 25 MG, 3X/DAY
     Dates: start: 2003, end: 2013
  2. VISTARIL [Suspect]
     Indication: CYSTITIS INTERSTITIAL
  3. LYRICA [Suspect]
     Indication: BLADDER PAIN
     Dosage: 30 MG, 3X/DAY
     Dates: start: 2013, end: 201306

REACTIONS (4)
  - Off label use [Recovered/Resolved]
  - Oedema peripheral [Recovered/Resolved]
  - Gait disturbance [Recovered/Resolved]
  - Drug hypersensitivity [Unknown]
